FAERS Safety Report 19474135 (Version 2)
Quarter: 2021Q3

REPORT INFORMATION
  Report Type: Spontaneous
  Country: JP (occurrence: JP)
  Receive Date: 20210630
  Receipt Date: 20210824
  Transmission Date: 20211014
  Serious: Yes (Other)
  Sender: FDA-Public Use
  Company Number: JP-AMGEN-JPNSP2021099709

PATIENT
  Sex: Female

DRUGS (1)
  1. ENBREL [Suspect]
     Active Substance: ETANERCEPT
     Indication: PRODUCT USED FOR UNKNOWN INDICATION
     Dosage: 50 MILLIGRAM, QWK
     Route: 058

REACTIONS (8)
  - Exposure via skin contact [Unknown]
  - Device use issue [Unknown]
  - Injection site erythema [Recovered/Resolved]
  - Accidental exposure to product [Unknown]
  - Injection site extravasation [Unknown]
  - Device issue [Unknown]
  - Injection site pruritus [Recovered/Resolved]
  - Injection site reaction [Unknown]
